FAERS Safety Report 5709491-7 (Version None)
Quarter: 2008Q2

REPORT INFORMATION
  Report Type: 
  Country: None (occurrence: None)
  Receive Date: 20080417
  Receipt Date: 20080417
  Transmission Date: 20081010
  Serious: Yes (Life-Threatening, Hospitalization, Other)
  Sender: FDA-Public Use
  Company Number: None

PATIENT
  Sex: Male
  Weight: 114.76 kg

DRUGS (2)
  1. MAGNEVIST [Suspect]
     Indication: BACK PAIN
     Dosage: 22 ML ONCE IV
     Route: 042
     Dates: start: 20080303
  2. MAGNEVIST [Suspect]
     Indication: NUCLEAR MAGNETIC RESONANCE IMAGING
     Dosage: 22 ML ONCE IV
     Route: 042
     Dates: start: 20080303

REACTIONS (4)
  - ATRIAL FIBRILLATION [None]
  - BACK PAIN [None]
  - COMA [None]
  - CONTRAST MEDIA REACTION [None]
